FAERS Safety Report 8001960-2 (Version None)
Quarter: 2011Q4

REPORT INFORMATION
  Report Type: 
  Country: None (occurrence: None)
  Receive Date: 20111220
  Receipt Date: 20111214
  Transmission Date: 20120403
  Serious: Yes (Life-Threatening, Hospitalization)
  Sender: FDA-Public Use
  Company Number: USA/USA/11/0022371

PATIENT
  Age: 49 Year
  Sex: Male

DRUGS (3)
  1. AMLODIPINE BESYLATE [Suspect]
     Indication: PRODUCT USED FOR UNKNOWN INDICATION
     Dosage: 600 MG, TOTAL
  2. TRAMADOL HCL [Suspect]
     Indication: PRODUCT USED FOR UNKNOWN INDICATION
     Dosage: 600 MG, TOTAL
  3. CLONAZEPAM [Suspect]
     Indication: PRODUCT USED FOR UNKNOWN INDICATION
     Dosage: 60 MG, TOTAL

REACTIONS (9)
  - RESPIRATORY FAILURE [None]
  - RENAL DISORDER [None]
  - MULTIPLE DRUG OVERDOSE INTENTIONAL [None]
  - NODAL RHYTHM [None]
  - NON-CARDIOGENIC PULMONARY OEDEMA [None]
  - HYPOTENSION [None]
  - OLIGURIA [None]
  - SUICIDE ATTEMPT [None]
  - BRADYCARDIA [None]
